FAERS Safety Report 19806390 (Version 3)
Quarter: 2021Q4

REPORT INFORMATION
  Report Type: Spontaneous
  Country: US (occurrence: US)
  Receive Date: 20210908
  Receipt Date: 20211004
  Transmission Date: 20220304
  Serious: Yes (Hospitalization)
  Sender: FDA-Public Use
  Company Number: US-JACOBUS PHARMACEUTICAL COMPANY, INC.-2118125

PATIENT
  Age: 20 Month
  Sex: Female

DRUGS (3)
  1. RUZURGI [Suspect]
     Active Substance: AMIFAMPRIDINE
     Indication: Congenital myasthenic syndrome
     Route: 048
     Dates: start: 20210608
  2. MESTINON [Concomitant]
     Active Substance: PYRIDOSTIGMINE BROMIDE
  3. VITAMIN D [Concomitant]
     Active Substance: VITAMIN D NOS

REACTIONS (3)
  - Infection [Unknown]
  - COVID-19 [Unknown]
  - Disease progression [Unknown]

NARRATIVE: CASE EVENT DATE: 20210826
